FAERS Safety Report 4683691-X (Version None)
Quarter: 2005Q2

REPORT INFORMATION
  Report Type: 
  Country: None (occurrence: None)
  Receive Date: 20050607
  Receipt Date: 20050602
  Transmission Date: 20051028
  Serious: Yes (Other)
  Sender: FDA-Public Use
  Company Number: 200515083GDDC

PATIENT
  Age: 55 Year
  Sex: Male

DRUGS (5)
  1. FRUSEMIDE [Suspect]
     Indication: MYOCARDIAL ISCHAEMIA
     Dates: start: 19900101
  2. AMIODARONE HYDROCHLORIDE [Suspect]
     Indication: CARDIAC DISORDER
     Dates: start: 19860101
  3. MIANSERIN HYDROCHLORIDE [Suspect]
     Indication: DEPRESSION
     Dates: start: 19900101, end: 19960112
  4. ISORDIL [Suspect]
     Dates: start: 19900101
  5. ENALAPRIL MALEATE [Concomitant]
     Indication: CARDIAC FAILURE CONGESTIVE
     Dates: start: 19900101

REACTIONS (4)
  - ALANINE AMINOTRANSFERASE INCREASED [None]
  - BLOOD ALKALINE PHOSPHATASE INCREASED [None]
  - GAMMA-GLUTAMYLTRANSFERASE INCREASED [None]
  - HEPATIC FUNCTION ABNORMAL [None]
